FAERS Safety Report 6031587-3 (Version None)
Quarter: 2008Q4

REPORT INFORMATION
  Report Type: 
  Country: None (occurrence: None)
  Receive Date: 20081229
  Receipt Date: 20080310
  Transmission Date: 20090506
  Serious: Yes (Hospitalization)
  Sender: FDA-Public Use
  Company Number: 167007USA

PATIENT
  Age: 15 Year
  Sex: Female
  Weight: 73.9363 kg

DRUGS (5)
  1. CLOZAPINE [Suspect]
     Indication: AFFECTIVE DISORDER
     Dosage: (500 MG),ORAL
     Route: 048
  2. CLOZAPINE [Suspect]
     Indication: AGGRESSION
     Dosage: (500 MG),ORAL
     Route: 048
  3. NALTREXONE [Concomitant]
  4. BENZTROPINE MESYLATE [Concomitant]
  5. TERAZOSIN HYDROCHLORIDE [Concomitant]

REACTIONS (3)
  - ESSENTIAL HYPERTENSION [None]
  - NAUSEA [None]
  - VOMITING [None]
